FAERS Safety Report 14652832 (Version 1)
Quarter: 2018Q1

REPORT INFORMATION
  Report Type: Spontaneous
  Country: US (occurrence: US)
  Receive Date: 20180316
  Receipt Date: 20180316
  Transmission Date: 20180509
  Serious: No
  Sender: FDA-Public Use
  Company Number: None

PATIENT
  Age: 50 Year
  Sex: Female

DRUGS (1)
  1. ENTYVIO [Suspect]
     Active Substance: VEDOLIZUMAB
     Indication: CROHN^S DISEASE
     Dosage: 300MG Q7WEEK IV
     Route: 042
     Dates: start: 20170401

REACTIONS (4)
  - Sinusitis [None]
  - Alopecia [None]
  - Upper respiratory tract infection [None]
  - Bronchitis [None]

NARRATIVE: CASE EVENT DATE: 20180315
